FAERS Safety Report 6620090-5 (Version None)
Quarter: 2010Q1

REPORT INFORMATION
  Report Type: 
  Country: None (occurrence: None)
  Receive Date: 20100308
  Receipt Date: 20100308
  Transmission Date: 20100710
  Serious: Yes (Other)
  Sender: FDA-Public Use
  Company Number: None

PATIENT
  Sex: Female
  Weight: 77.1115 kg

DRUGS (1)
  1. QUINAPRIL HCL [Suspect]
     Indication: HYPERTENSION
     Dosage: 40 MG TWICE DAILY RX # 20765431 ORAL MED.
     Route: 048
     Dates: start: 20100204, end: 20100216

REACTIONS (10)
  - ANXIETY [None]
  - BLOOD DISORDER [None]
  - CHILLS [None]
  - DYSPNOEA [None]
  - INSOMNIA [None]
  - PYREXIA [None]
  - RASH [None]
  - SKIN DISCOLOURATION [None]
  - URTICARIA [None]
  - VOMITING [None]
